FAERS Safety Report 8423740-6 (Version None)
Quarter: 2012Q2

REPORT INFORMATION
  Report Type: 
  Country: None (occurrence: None)
  Receive Date: 20120608
  Receipt Date: 20120202
  Transmission Date: 20120825
  Serious: No
  Sender: FDA-Public Use
  Company Number: US-ASTRAZENECA-2012SE07989

PATIENT
  Age: 63 Year
  Sex: Female

DRUGS (2)
  1. ATACAND [Suspect]
     Route: 048
  2. LOSARTAN POTASSIUM [Suspect]
     Route: 065

REACTIONS (1)
  - HYPERSENSITIVITY [None]
